FAERS Safety Report 10671395 (Version 2)
Quarter: 2015Q1

REPORT INFORMATION
  Report Type: Report from Study
  Country: US (occurrence: US)
  Receive Date: 20141223
  Receipt Date: 20150226
  Transmission Date: 20150720
  Serious: Yes (Other)
  Sender: FDA-Public Use
  Company Number: US-MYLANLABS-2014M1014298

PATIENT

DRUGS (3)
  1. AMNESTEEM [Suspect]
     Active Substance: ISOTRETINOIN
     Indication: ACNE CYSTIC
     Dosage: 20 MG, QD
     Route: 048
     Dates: start: 2014, end: 201412
  2. AMNESTEEM [Suspect]
     Active Substance: ISOTRETINOIN
     Indication: ACNE CYSTIC
     Dosage: 40 MG, QD
     Route: 048
     Dates: start: 201408, end: 201412
  3. METHYLPHENIDATE [Concomitant]
     Active Substance: METHYLPHENIDATE
     Dosage: UNK

REACTIONS (2)
  - Depression [Not Recovered/Not Resolved]
  - Suicidal ideation [Recovered/Resolved]

NARRATIVE: CASE EVENT DATE: 2014
